FAERS Safety Report 7427363-7 (Version None)
Quarter: 2011Q2

REPORT INFORMATION
  Report Type: 
  Country: None (occurrence: None)
  Receive Date: 20110420
  Receipt Date: 20110411
  Transmission Date: 20111010
  Serious: No
  Sender: FDA-Public Use
  Company Number: US-B.I. PHARMACEUTICALS,INC./RIDGEFIELD-2011-BP-10548BP

PATIENT
  Sex: Male

DRUGS (9)
  1. LEVOTHYROXINE SODIUM [Concomitant]
     Indication: HYPOTHYROIDISM
     Dosage: 62.5 G
  2. PRADAXA [Suspect]
     Indication: ATRIAL FIBRILLATION
     Dosage: 300 MG
     Route: 048
     Dates: start: 20110314
  3. TAZIA [Concomitant]
     Indication: HYPERTENSION
     Dosage: 90 MG
  4. ACTOS [Concomitant]
     Indication: DIABETES MELLITUS
     Dosage: 30 MG
  5. SPIRIVA [Concomitant]
     Indication: CHRONIC OBSTRUCTIVE PULMONARY DISEASE
     Dosage: 18 MCG
  6. GLIPIZIDE [Concomitant]
     Indication: DIABETES MELLITUS
     Dosage: 2.5 MG
  7. SINGULAIR [Concomitant]
     Indication: HYPERSENSITIVITY
  8. POTASSIUM [Concomitant]
     Indication: ATRIAL FIBRILLATION
     Dosage: 20 MG
  9. DIOVAN [Concomitant]
     Indication: HYPERTENSION
     Dosage: 80 MG

REACTIONS (2)
  - DYSPNOEA [None]
  - DYSPEPSIA [None]
